FAERS Safety Report 5096584-3 (Version None)
Quarter: 2006Q3

REPORT INFORMATION
  Report Type: 
  Country: None (occurrence: None)
  Receive Date: 20060830
  Receipt Date: 20060817
  Transmission Date: 20061208
  Serious: Yes (Death)
  Sender: FDA-Public Use
  Company Number: 2006101914

PATIENT

DRUGS (1)
  1. SOLU-CORTEF [Suspect]
     Indication: DRUG USE FOR UNKNOWN INDICATION
     Dates: start: 20060817, end: 20060817

REACTIONS (1)
  - HAEMATEMESIS [None]
